FAERS Safety Report 13445638 (Version 1)
Quarter: 2017Q2

REPORT INFORMATION
  Report Type: Spontaneous
  Country: US (occurrence: US)
  Receive Date: 20170415
  Receipt Date: 20170415
  Transmission Date: 20170830
  Serious: Yes (Death, Hospitalization)
  Sender: FDA-Public Use
  Company Number: US-JNJFOC-2004096295

PATIENT
  Age: 15 Month
  Sex: Male

DRUGS (1)
  1. BENADRYL [Suspect]
     Active Substance: DIPHENHYDRAMINE HYDROCHLORIDE
     Indication: ILL-DEFINED DISORDER
     Route: 048
     Dates: start: 19890715

REACTIONS (3)
  - Accidental overdose [Fatal]
  - Seizure [Fatal]
  - Death [Fatal]

NARRATIVE: CASE EVENT DATE: 19890715
